FAERS Safety Report 9596104 (Version 3)
Quarter: 2014Q1

REPORT INFORMATION
  Report Type: Spontaneous
  Country: US (occurrence: US)
  Receive Date: 20131004
  Receipt Date: 20140324
  Transmission Date: 20141002
  Serious: Yes (Hospitalization, Other)
  Sender: FDA-Public Use
  Company Number: US-PFIZER INC-2013279424

PATIENT
  Age: 53 Year
  Sex: Female

DRUGS (4)
  1. XELJANZ [Suspect]
     Indication: RHEUMATOID ARTHRITIS
     Dosage: 5 MG, 2X/DAY
     Dates: start: 20130724, end: 201309
  2. XELJANZ [Suspect]
     Dosage: 5 MG, 2X/DAY
     Dates: start: 2013, end: 2013
  3. PREDNISONE [Concomitant]
     Dosage: LOW DOSE
  4. NEURONTIN [Concomitant]
     Dosage: LOW DOSE

REACTIONS (6)
  - Aortic aneurysm [Unknown]
  - Ulcer haemorrhage [Unknown]
  - Thyroid disorder [Unknown]
  - Drug dose omission [Unknown]
  - Pain [Recovering/Resolving]
  - Influenza like illness [Unknown]
